FAERS Safety Report 9599058 (Version 1)
Quarter: 2013Q4

REPORT INFORMATION
  Report Type: Spontaneous
  Country: US (occurrence: US)
  Receive Date: 20131004
  Receipt Date: 20131004
  Transmission Date: 20140711
  Serious: No
  Sender: FDA-Public Use
  Company Number: US-AMGEN-USASP2013027588

PATIENT
  Age: 42 Year
  Sex: Female
  Weight: 96.6 kg

DRUGS (7)
  1. ENBREL [Suspect]
     Indication: PSORIATIC ARTHROPATHY
     Dosage: UNK
  2. CELEBREX [Concomitant]
     Dosage: UNK
  3. HYDROCHLOROTHIAZIDE W/TRIAMTERENE [Concomitant]
     Dosage: UNK
  4. METHOTREXATE [Concomitant]
     Dosage: UNK
  5. ADDERALL [Concomitant]
     Dosage: UNK
  6. VITAMIN B12                        /00056201/ [Concomitant]
     Dosage: UNK
  7. HUMIRA [Concomitant]
     Dosage: UNK

REACTIONS (1)
  - Therapeutic response decreased [Unknown]
